FAERS Safety Report 17485350 (Version 1)
Quarter: 2020Q1

REPORT INFORMATION
  Report Type: Other
  Country: US (occurrence: US)
  Receive Date: 20200302
  Receipt Date: 20200302
  Transmission Date: 20200409
  Serious: Yes (Other)
  Sender: FDA-Public Use
  Company Number: US-STANDARD HOMEOPATHIC COMPANY-2081200

PATIENT
  Age: 44 Year
  Sex: Male

DRUGS (1)
  1. CALMS FORTE 4 KIDS [Suspect]
     Active Substance: HOMEOPATHICS
     Indication: STRESS
     Route: 048
     Dates: start: 20200201, end: 20200201

REACTIONS (1)
  - Trigeminal neuralgia [Unknown]

NARRATIVE: CASE EVENT DATE: 20200201
